FAERS Safety Report 23098748 (Version 1)
Quarter: 2023Q4

REPORT INFORMATION
  Report Type: Spontaneous
  Country: ID (occurrence: ID)
  Receive Date: 20231024
  Receipt Date: 20231024
  Transmission Date: 20240110
  Serious: Yes (Other)
  Sender: FDA-Public Use
  Company Number: ID-ROCHE-3434336

PATIENT
  Sex: Female

DRUGS (3)
  1. CAPECITABINE [Suspect]
     Active Substance: CAPECITABINE
     Indication: Colorectal cancer metastatic
  2. AVASTIN [Suspect]
     Active Substance: BEVACIZUMAB
     Indication: Colorectal cancer metastatic
     Dates: start: 2019
  3. TS-1 [Suspect]
     Active Substance: GIMERACIL\OTERACIL POTASSIUM\TEGAFUR
     Indication: Colorectal cancer metastatic
     Dates: start: 2019

REACTIONS (6)
  - Metastases to lung [Unknown]
  - Metastases to liver [Unknown]
  - Headache [Unknown]
  - COVID-19 [Unknown]
  - Pain [Unknown]
  - Drug ineffective [Unknown]
